FAERS Safety Report 21151083 (Version 5)
Quarter: 2023Q2

REPORT INFORMATION
  Report Type: Report from Study
  Country: US (occurrence: US)
  Receive Date: 20220729
  Receipt Date: 20230427
  Transmission Date: 20230722
  Serious: Yes (Hospitalization)
  Sender: FDA-Public Use
  Company Number: US-ABBVIE-22K-163-4486294-00

PATIENT
  Sex: Female

DRUGS (3)
  1. IMBRUVICA [Suspect]
     Active Substance: IBRUTINIB
     Indication: Non-Hodgkin^s lymphoma
     Dosage: DOSE DECREASED?FORM STRENGTH 140 MILLIGRAM
     Route: 048
  2. IMBRUVICA [Suspect]
     Active Substance: IBRUTINIB
     Indication: Non-Hodgkin^s lymphoma
     Dosage: FORM STRENGTH 140 MILLIGRAM
     Route: 048
  3. IMBRUVICA [Suspect]
     Active Substance: IBRUTINIB
     Indication: Non-Hodgkin^s lymphoma
     Dosage: FORM STRENGTH 140 MILLIGRAM
     Route: 048

REACTIONS (17)
  - Hospitalisation [Recovering/Resolving]
  - Asthma [Recovering/Resolving]
  - COVID-19 [Recovering/Resolving]
  - Pneumonia [Recovering/Resolving]
  - Heart rate increased [Unknown]
  - Frequent bowel movements [Unknown]
  - Insomnia [Unknown]
  - Muscle spasms [Unknown]
  - Erythema [Unknown]
  - Pruritus [Unknown]
  - Skin disorder [Unknown]
  - Skin discolouration [Unknown]
  - Trismus [Unknown]
  - Diarrhoea [Unknown]
  - Skin exfoliation [Unknown]
  - Varicose vein [Unknown]
  - Hypertension [Unknown]

NARRATIVE: CASE EVENT DATE: 20220101
